FAERS Safety Report 6442065-1 (Version None)
Quarter: 2009Q4

REPORT INFORMATION
  Report Type: 
  Country: None (occurrence: None)
  Receive Date: 20091116
  Receipt Date: 20091103
  Transmission Date: 20100525
  Serious: Yes (Other)
  Sender: FDA-Public Use
  Company Number: PHEH2009US14946

PATIENT

DRUGS (1)
  1. EXJADE [Suspect]
     Dosage: 500 MG, TID

REACTIONS (1)
  - BONE MARROW TRANSPLANT [None]
